FAERS Safety Report 8622667-4 (Version None)
Quarter: 2012Q3

REPORT INFORMATION
  Report Type: 
  Country: None (occurrence: None)
  Receive Date: 20120813
  Receipt Date: 20120731
  Transmission Date: 20120928
  Serious: Yes (Disabling, Other)
  Sender: FDA-Public Use
  Company Number: ACO_30528_2012

PATIENT
  Age: 60 Year
  Sex: Female

DRUGS (2)
  1. AMPYRA [Suspect]
     Indication: GAIT DISTURBANCE
     Dosage: 10 MG, BID, 10 MG, BID
     Dates: start: 20120511, end: 20120511
  2. AMPYRA [Suspect]
     Indication: GAIT DISTURBANCE
     Dosage: 10 MG, BID, 10 MG, BID
     Dates: start: 20120601

REACTIONS (6)
  - GAIT DISTURBANCE [None]
  - DYSSTASIA [None]
  - KIDNEY INFECTION [None]
  - VOMITING [None]
  - FALL [None]
  - DIZZINESS [None]
